FAERS Safety Report 17437110 (Version 2)
Quarter: 2023Q4

REPORT INFORMATION
  Report Type: Spontaneous
  Country: US (occurrence: US)
  Receive Date: 20200219
  Receipt Date: 20231101
  Transmission Date: 20240109
  Serious: Yes (Hospitalization)
  Sender: FDA-Public Use
  Company Number: US-JNJFOC-20200227762

PATIENT
  Age: 13 Year
  Sex: Male

DRUGS (5)
  1. RISPERDAL [Suspect]
     Active Substance: RISPERIDONE
     Indication: Affective disorder
     Route: 048
     Dates: start: 2008, end: 2013
  2. RISPERDAL [Suspect]
     Active Substance: RISPERIDONE
     Indication: Behaviour disorder
     Route: 048
  3. RISPERIDONE [Suspect]
     Active Substance: RISPERIDONE
     Indication: Product used for unknown indication
     Route: 048
     Dates: start: 2008, end: 2013
  4. RISPERIDONE [Suspect]
     Active Substance: RISPERIDONE
     Route: 048
  5. RISPERIDONE [Suspect]
     Active Substance: RISPERIDONE
     Indication: Product used for unknown indication
     Route: 065

REACTIONS (8)
  - Suicidal ideation [Recovered/Resolved]
  - Emotional disorder [Unknown]
  - Hunger [Unknown]
  - Psychomotor hyperactivity [Unknown]
  - Pollakiuria [Unknown]
  - Gynaecomastia [Unknown]
  - Weight increased [Unknown]
  - Hypersomnia [Unknown]

NARRATIVE: CASE EVENT DATE: 20150129
